FAERS Safety Report 20534566 (Version 3)
Quarter: 2022Q2

REPORT INFORMATION
  Report Type: Spontaneous
  Country: CN (occurrence: None)
  Receive Date: 20220302
  Receipt Date: 20220421
  Transmission Date: 20220721
  Serious: Yes (Other)
  Sender: FDA-Public Use
  Company Number: CN-ROCHE-3031062

PATIENT
  Age: 64 Year
  Sex: Male

DRUGS (23)
  1. ATEZOLIZUMAB [Suspect]
     Active Substance: ATEZOLIZUMAB
     Indication: Small cell lung cancer
     Route: 041
     Dates: start: 20210325
  2. ATEZOLIZUMAB [Suspect]
     Active Substance: ATEZOLIZUMAB
     Dosage: 1200 MG
     Route: 065
     Dates: start: 20210417
  3. ATEZOLIZUMAB [Suspect]
     Active Substance: ATEZOLIZUMAB
     Dosage: 1200 MG
     Route: 065
     Dates: start: 20210516
  4. ATEZOLIZUMAB [Suspect]
     Active Substance: ATEZOLIZUMAB
     Dosage: 1200 MG
     Route: 065
     Dates: start: 20210701
  5. ATEZOLIZUMAB [Suspect]
     Active Substance: ATEZOLIZUMAB
     Dosage: 1200 MG
     Route: 065
     Dates: start: 20210722
  6. ATEZOLIZUMAB [Suspect]
     Active Substance: ATEZOLIZUMAB
     Dosage: 1200 MG
     Route: 065
     Dates: start: 20210812
  7. ATEZOLIZUMAB [Suspect]
     Active Substance: ATEZOLIZUMAB
     Dosage: 1200 MG
     Route: 065
     Dates: start: 20210902
  8. ATEZOLIZUMAB [Suspect]
     Active Substance: ATEZOLIZUMAB
     Dosage: 1200 MG
     Route: 065
     Dates: start: 20210923
  9. ATEZOLIZUMAB [Suspect]
     Active Substance: ATEZOLIZUMAB
     Dosage: 1200 MG
     Route: 065
     Dates: start: 20211014
  10. ATEZOLIZUMAB [Suspect]
     Active Substance: ATEZOLIZUMAB
     Dosage: 1200 MG
     Route: 065
     Dates: start: 20211105
  11. ATEZOLIZUMAB [Suspect]
     Active Substance: ATEZOLIZUMAB
     Dosage: 1200 MG
     Route: 065
     Dates: start: 20211126
  12. ATEZOLIZUMAB [Suspect]
     Active Substance: ATEZOLIZUMAB
     Dosage: 1200 MG
     Route: 065
     Dates: start: 20211217
  13. ATEZOLIZUMAB [Suspect]
     Active Substance: ATEZOLIZUMAB
     Dosage: 1200 MG
     Route: 065
     Dates: start: 20220107
  14. ATEZOLIZUMAB [Suspect]
     Active Substance: ATEZOLIZUMAB
     Dosage: 1200 MG
     Route: 065
     Dates: start: 20220128
  15. METOPROLOL [Concomitant]
     Active Substance: METOPROLOL
     Indication: Hypertension
     Route: 065
  16. CARBOPLATIN [Concomitant]
     Active Substance: CARBOPLATIN
     Indication: Small cell lung cancer
     Dosage: 0.5G ON DAY 1
     Route: 065
     Dates: start: 20210325
  17. CARBOPLATIN [Concomitant]
     Active Substance: CARBOPLATIN
     Dosage: 0.5G ON DAY 1
     Dates: start: 20210417
  18. CARBOPLATIN [Concomitant]
     Active Substance: CARBOPLATIN
     Dosage: 0.5G ON DAY 1
     Dates: start: 20210516
  19. CARBOPLATIN [Concomitant]
     Active Substance: CARBOPLATIN
     Dosage: 0.5G ON DAY 1
     Dates: start: 20210701
  20. ETOPOSIDE [Concomitant]
     Active Substance: ETOPOSIDE
     Indication: Small cell lung cancer
     Dosage: 0.17G ON DAY 1 - DAY 3
     Dates: start: 20210325
  21. ETOPOSIDE [Concomitant]
     Active Substance: ETOPOSIDE
     Dosage: 0.17G ON DAY 1 - DAY 3
     Dates: start: 20210417
  22. ETOPOSIDE [Concomitant]
     Active Substance: ETOPOSIDE
     Dosage: 0.17G ON DAY 1 - DAY 3
     Dates: start: 20210516
  23. ETOPOSIDE [Concomitant]
     Active Substance: ETOPOSIDE
     Dosage: 0.17G ON DAY 1 - DAY 3
     Dates: start: 20210701

REACTIONS (3)
  - Myelosuppression [Recovered/Resolved]
  - Haemoglobin decreased [Recovered/Resolved]
  - Blood creatinine increased [Recovered/Resolved]
